FAERS Safety Report 16537342 (Version 1)
Quarter: 2019Q3

REPORT INFORMATION
  Report Type: Spontaneous
  Country: US (occurrence: US)
  Receive Date: 20190707
  Receipt Date: 20190707
  Transmission Date: 20191004
  Serious: No
  Sender: FDA-Public Use
  Company Number: US-AMGEN-USASP2019106789

PATIENT
  Age: 70 Year
  Sex: Male

DRUGS (14)
  1. MEROPENEM. [Concomitant]
     Active Substance: MEROPENEM
     Indication: ALTERNARIA INFECTION
     Dosage: UNK
  2. LEVOFLOXACIN. [Concomitant]
     Active Substance: LEVOFLOXACIN
     Indication: ALTERNARIA INFECTION
     Dosage: UNK
  3. CEFEPIME [Concomitant]
     Active Substance: CEFEPIME HYDROCHLORIDE
     Indication: ALTERNARIA INFECTION
     Dosage: UNK
  4. CASPOFUNGIN [Concomitant]
     Active Substance: CASPOFUNGIN
     Indication: ALTERNARIA INFECTION
     Dosage: UNK
  5. LEVOFLOXACIN. [Concomitant]
     Active Substance: LEVOFLOXACIN
     Indication: PNEUMONIA PNEUMOCOCCAL
  6. FILGRASTIM [Suspect]
     Active Substance: FILGRASTIM
     Indication: AUTOIMMUNE NEUTROPENIA
     Dosage: UNK
     Route: 065
  7. ATORVASTATIN [Concomitant]
     Active Substance: ATORVASTATIN
     Indication: ISCHAEMIC STROKE
     Dosage: UNK
  8. ASPIRIN [ACETYLSALICYLIC ACID] [Concomitant]
     Active Substance: ASPIRIN
     Indication: ISCHAEMIC STROKE
     Dosage: UNK
  9. AMPHOTERICIN B. [Concomitant]
     Active Substance: AMPHOTERICIN B
     Indication: ALTERNARIA INFECTION
     Dosage: UNK
  10. METRONIDAZOLE. [Concomitant]
     Active Substance: METRONIDAZOLE
     Indication: ALTERNARIA INFECTION
     Dosage: UNK
  11. MICAFUNGIN. [Concomitant]
     Active Substance: MICAFUNGIN SODIUM
     Indication: ALTERNARIA INFECTION
     Dosage: UNK
  12. OXACILLIN [Concomitant]
     Active Substance: OXACILLIN SODIUM
     Indication: ALTERNARIA INFECTION
     Dosage: UNK
  13. OXACILLIN [Concomitant]
     Active Substance: OXACILLIN SODIUM
     Indication: PNEUMONIA PNEUMOCOCCAL
  14. VANCOMYCIN [Concomitant]
     Active Substance: VANCOMYCIN
     Indication: ALTERNARIA INFECTION
     Dosage: UNK

REACTIONS (1)
  - Off label use [Unknown]
